FAERS Safety Report 7177100-9 (Version None)
Quarter: 2010Q4

REPORT INFORMATION
  Report Type: 
  Country: None (occurrence: None)
  Receive Date: 20101220
  Receipt Date: 20101208
  Transmission Date: 20110411
  Serious: Yes (Other)
  Sender: FDA-Public Use
  Company Number: PHHY2010US83013

PATIENT
  Sex: Male
  Weight: 74.376 kg

DRUGS (3)
  1. FANAPT [Suspect]
     Dosage: 6 MG, BID
     Route: 048
     Dates: start: 20101112, end: 20101120
  2. LORATADINE [Concomitant]
     Indication: HYPERSENSITIVITY
     Dosage: UNK
  3. LASIX [Concomitant]
     Dosage: UNK

REACTIONS (3)
  - DRY MOUTH [None]
  - KIDNEY INFECTION [None]
  - WEIGHT INCREASED [None]
